FAERS Safety Report 22165136 (Version 1)
Quarter: 2023Q2

REPORT INFORMATION
  Report Type: Spontaneous
  Country: US (occurrence: US)
  Receive Date: 20230403
  Receipt Date: 20230403
  Transmission Date: 20230721
  Serious: No
  Sender: FDA-Public Use
  Company Number: US-BRISTOL-MYERS SQUIBB COMPANY-2023-041081

PATIENT
  Age: 62 Year
  Sex: Female

DRUGS (1)
  1. POMALYST [Suspect]
     Active Substance: POMALIDOMIDE
     Indication: Plasma cell myeloma
     Dosage: FREQUENCY: TAKE 1CAPSULE BY MOUTH ONCE DAILY FOR 21 DAYS ON AND 7 DAYS
     Route: 048
     Dates: start: 202012

REACTIONS (2)
  - Alopecia [Unknown]
  - Incision site swelling [Unknown]
